FAERS Safety Report 5015827-5 (Version None)
Quarter: 2006Q2

REPORT INFORMATION
  Report Type: 
  Country: None (occurrence: None)
  Receive Date: 20060525
  Receipt Date: 20060512
  Transmission Date: 20061013
  Serious: Yes (Life-Threatening, Hospitalization, Other)
  Sender: FDA-Public Use
  Company Number: 2003EU005736

PATIENT
  Age: 1 Year
  Sex: Female

DRUGS (3)
  1. PROGRAF [Suspect]
     Indication: LIVER TRANSPLANT
     Dosage: 1 MG, UID/QD
     Dates: start: 19940509
  2. AZATHIOPRINE [Concomitant]
  3. PREDNISONE TAB [Concomitant]

REACTIONS (13)
  - ANGIONEUROTIC OEDEMA [None]
  - ANTI-PLATELET ANTIBODY POSITIVE [None]
  - ASTHMA [None]
  - BLOOD IMMUNOGLOBULIN E INCREASED [None]
  - CYTOMEGALOVIRUS INFECTION [None]
  - DIARRHOEA [None]
  - ECZEMA [None]
  - LIVER TRANSPLANT REJECTION [None]
  - MILK ALLERGY [None]
  - MUCOSAL HAEMORRHAGE [None]
  - PANCYTOPENIA [None]
  - REFUSAL OF TREATMENT BY RELATIVE [None]
  - SKIN TEST POSITIVE [None]
